FAERS Safety Report 13567998 (Version 1)
Quarter: 2017Q2

REPORT INFORMATION
  Report Type: Spontaneous
  Country: US (occurrence: US)
  Receive Date: 20170522
  Receipt Date: 20170522
  Transmission Date: 20170830
  Serious: Yes (Hospitalization, Other)
  Sender: FDA-Public Use
  Company Number: US-ZYDUS-015219

PATIENT
  Age: 62 Year
  Sex: Male

DRUGS (1)
  1. MINOCYCLINE [Suspect]
     Active Substance: MINOCYCLINE\MINOCYCLINE HYDROCHLORIDE
     Indication: GINGIVITIS
     Route: 004

REACTIONS (16)
  - Oropharyngeal pain [Recovered/Resolved]
  - Lymphadenopathy [Recovered/Resolved]
  - Tongue abscess [Recovered/Resolved]
  - Tachycardia [Recovered/Resolved]
  - Swelling [Recovered/Resolved]
  - Odynophagia [Recovered/Resolved]
  - Trismus [Recovered/Resolved]
  - Salivary gland mass [Recovered/Resolved]
  - Tenderness [Recovered/Resolved]
  - Pyrexia [Recovered/Resolved]
  - Red blood cell sedimentation rate increased [Recovered/Resolved]
  - Hypophagia [Recovered/Resolved]
  - Dysphonia [Recovered/Resolved]
  - Bone pain [Recovered/Resolved]
  - White blood cell count increased [Recovered/Resolved]
  - Condition aggravated [Recovered/Resolved]
